FAERS Safety Report 9013389 (Version 1)
Quarter: 2013Q1

REPORT INFORMATION
  Report Type: Spontaneous
  Country: US (occurrence: None)
  Receive Date: 20130107
  Receipt Date: 20130107
  Transmission Date: 20140127
  Serious: No
  Sender: FDA-Public Use
  Company Number: None

PATIENT
  Age: 58 Year
  Sex: Female

DRUGS (1)
  1. GENERIC PROZAC [Suspect]
     Indication: DEPRESSION
     Dosage: 40 MG II QAM

REACTIONS (3)
  - Agitation [None]
  - Confusional state [None]
  - Product substitution issue [None]
